FAERS Safety Report 15451988 (Version 1)
Quarter: 2018Q4

REPORT INFORMATION
  Report Type: Spontaneous
  Country: CA (occurrence: CA)
  Receive Date: 20181001
  Receipt Date: 20181001
  Transmission Date: 20190204
  Serious: Yes (Other)
  Sender: FDA-Public Use
  Company Number: CA-PFIZER INC-2018390224

PATIENT
  Age: 9 Year
  Sex: Male

DRUGS (1)
  1. CHILDRENS ADVIL [Suspect]
     Active Substance: IBUPROFEN
     Indication: PAIN
     Dosage: 12 ML, UNK
     Route: 048

REACTIONS (3)
  - Skin disorder [Unknown]
  - Telangiectasia [Unknown]
  - Erythema [Unknown]
